FAERS Safety Report 7717926-3 (Version None)
Quarter: 2011Q3

REPORT INFORMATION
  Report Type: 
  Country: None (occurrence: None)
  Receive Date: 20110830
  Receipt Date: 20110824
  Transmission Date: 20111222
  Serious: Yes (Hospitalization, Other)
  Sender: FDA-Public Use
  Company Number: CHPA2011US11481

PATIENT
  Sex: Female

DRUGS (2)
  1. PERDIEM OVERNIGHT RELIEF PILLS [Suspect]
     Dosage: 2 DF, QHS
     Route: 048
  2. PERDIEM OVERNIGHT RELIEF PILLS [Suspect]
     Indication: CONSTIPATION
     Dosage: 1 DF, QHS
     Route: 048
     Dates: start: 20080101

REACTIONS (7)
  - GASTROINTESTINAL TRACT ADENOMA [None]
  - DECREASED APPETITE [None]
  - INCORRECT DRUG ADMINISTRATION DURATION [None]
  - SURGERY [None]
  - MALAISE [None]
  - INFECTION [None]
  - ASTHENIA [None]
